FAERS Safety Report 10911753 (Version 1)
Quarter: 2015Q1

REPORT INFORMATION
  Report Type: Spontaneous
  Country: US (occurrence: None)
  Receive Date: 20150309
  Receipt Date: 20150309
  Transmission Date: 20150721
  Serious: Yes (Hospitalization)
  Sender: FDA-Public Use
  Company Number: None

PATIENT
  Age: 20 Year
  Sex: Male
  Weight: 94.7 kg

DRUGS (3)
  1. ONCASPAR [Suspect]
     Active Substance: PEGASPARGASE
     Dates: end: 20150107
  2. PREDNISONE. [Suspect]
     Active Substance: PREDNISONE
     Dosage: COMMENTS:  PATIENTS PREDNISONE WAS CHANGED MYTHIPREDNISOLONE DUE TO PATIENTS CLINICAL CONDITION.  PATIENT CONTINUES ON MYTHLPREDNISOLONE ??
     Dates: end: 20150131
  3. DAUNORUBICIN [Suspect]
     Active Substance: DAUNORUBICIN
     Dosage: COMMENTS:  DELAYED PER PROTOCOL DUE TO INCREASED BILIRUBIN ??
     Dates: end: 20150122

REACTIONS (11)
  - Acute kidney injury [None]
  - Disseminated intravascular coagulation [None]
  - Respiratory failure [None]
  - Respiratory distress [None]
  - Hypoalbuminaemia [None]
  - Staphylococcus test positive [None]
  - Pneumonia [None]
  - Gastrointestinal haemorrhage [None]
  - Headache [None]
  - Haematemesis [None]
  - Hypotension [None]

NARRATIVE: CASE EVENT DATE: 20150113
